FAERS Safety Report 10733778 (Version 1)
Quarter: 2015Q1

REPORT INFORMATION
  Report Type: Report from Study
  Country: CA (occurrence: CA)
  Receive Date: 20150123
  Receipt Date: 20150123
  Transmission Date: 20150721
  Serious: Yes (Other)
  Sender: FDA-Public Use
  Company Number: CA-BRISTOL-MYERS SQUIBB COMPANY-21470505

PATIENT
  Age: 50 Year
  Sex: Female

DRUGS (4)
  1. AXERT [Concomitant]
     Active Substance: ALMOTRIPTAN MALATE
  2. PREDNISONE. [Concomitant]
     Active Substance: PREDNISONE
  3. SYNTHROID [Concomitant]
     Active Substance: LEVOTHYROXINE SODIUM
  4. ABATACEPT [Suspect]
     Active Substance: ABATACEPT
     Indication: RHEUMATOID ARTHRITIS
     Dosage: 750 MG, Q4WK
     Route: 042
     Dates: start: 20140925

REACTIONS (2)
  - Ocular hyperaemia [Unknown]
  - Sialoadenitis [Unknown]

NARRATIVE: CASE EVENT DATE: 20140929
